FAERS Safety Report 13414253 (Version 1)
Quarter: 2017Q2

REPORT INFORMATION
  Report Type: Spontaneous
  Country: DK (occurrence: DK)
  Receive Date: 20170407
  Receipt Date: 20170407
  Transmission Date: 20170830
  Serious: Yes (Hospitalization, Other)
  Sender: FDA-Public Use
  Company Number: DK-PFIZER INC-2017147366

PATIENT
  Age: 38 Year
  Sex: Male

DRUGS (7)
  1. TYSABRI [Concomitant]
     Active Substance: NATALIZUMAB
     Indication: MULTIPLE SCLEROSIS
     Dosage: 300 MG, MONTHLY
     Route: 042
     Dates: start: 201109
  2. MEDROL [Suspect]
     Active Substance: METHYLPREDNISOLONE
     Indication: MULTIPLE SCLEROSIS
     Dosage: 500 MG, SINGLE
     Dates: start: 200905
  3. FAMPYRA [Concomitant]
     Active Substance: DALFAMPRIDINE
     Indication: WALKING DISABILITY
     Dosage: STRENGHT: 10 MG SLOW RELEASE TABLETS
     Dates: start: 201406
  4. MEDROL [Suspect]
     Active Substance: METHYLPREDNISOLONE
     Dosage: UNK
     Dates: start: 201011
  5. REBIF [Concomitant]
     Active Substance: INTERFERON BETA-1A
     Indication: MULTIPLE SCLEROSIS
     Dates: end: 201109
  6. MEDROL [Suspect]
     Active Substance: METHYLPREDNISOLONE
     Indication: CONDITION AGGRAVATED
     Dosage: UNK
     Dates: start: 201003
  7. MEDROL [Suspect]
     Active Substance: METHYLPREDNISOLONE
     Dosage: UNK
     Dates: start: 201007

REACTIONS (2)
  - Arthralgia [Unknown]
  - Osteonecrosis [Recovered/Resolved]

NARRATIVE: CASE EVENT DATE: 2015
